FAERS Safety Report 11043812 (Version 1)
Quarter: 2015Q2

REPORT INFORMATION
  Report Type: Spontaneous
  Country: US (occurrence: US)
  Receive Date: 20150417
  Receipt Date: 20150417
  Transmission Date: 20150821
  Serious: Yes (Other)
  Sender: FDA-Public Use
  Company Number: US-MYLANLABS-2015M1011841

PATIENT

DRUGS (2)
  1. FLURAZEPAM HYDROCHLORIDE CAPSULES, USP [Suspect]
     Active Substance: FLURAZEPAM HYDROCHLORIDE
     Indication: INSOMNIA
     Dosage: 15 MG, QOD
     Route: 048
     Dates: start: 2000, end: 20150228
  2. LEVOTHYROXINE [Concomitant]
     Active Substance: LEVOTHYROXINE
     Indication: HYPOTHYROIDISM
     Dosage: 6.25 MG, QD
     Route: 048
     Dates: start: 2003

REACTIONS (4)
  - Alanine aminotransferase increased [Not Recovered/Not Resolved]
  - Vertigo [Not Recovered/Not Resolved]
  - Aspartate aminotransferase increased [Not Recovered/Not Resolved]
  - Gait disturbance [Not Recovered/Not Resolved]

NARRATIVE: CASE EVENT DATE: 201410
